FAERS Safety Report 6914668-9 (Version None)
Quarter: 2010Q3

REPORT INFORMATION
  Report Type: 
  Country: None (occurrence: None)
  Receive Date: 20100809
  Receipt Date: 20100802
  Transmission Date: 20110219
  Serious: Yes (Hospitalization)
  Sender: FDA-Public Use
  Company Number: US-GILEAD-2010-0029036

PATIENT
  Sex: Female
  Weight: 88.53 kg

DRUGS (13)
  1. LETAIRIS [Suspect]
     Indication: PULMONARY ARTERIAL HYPERTENSION
     Route: 048
     Dates: start: 20091218, end: 20100504
  2. COUMADIN [Concomitant]
  3. ASPIRIN [Concomitant]
  4. ALLOPURINOL [Concomitant]
  5. BISOPROLOL FUMARATE AND HYDROCHLOROTHIAZIDE [Concomitant]
  6. LISINOPRIL [Concomitant]
  7. LOSARTAN POSTASSIUM [Concomitant]
  8. CELEBREX [Concomitant]
  9. LOVASTATIN [Concomitant]
  10. METFORMIN HCL [Concomitant]
  11. PRILOSEC [Concomitant]
  12. CALCIUM AND VITAMIN D [Concomitant]
  13. FERROUS SULFATE [Concomitant]

REACTIONS (3)
  - ANAEMIA [None]
  - CARDIAC FAILURE CONGESTIVE [None]
  - FLUID RETENTION [None]
